FAERS Safety Report 5142058-0 (Version None)
Quarter: 2006Q4

REPORT INFORMATION
  Report Type: 
  Country: None (occurrence: None)
  Receive Date: 20061102
  Receipt Date: 20061027
  Transmission Date: 20070319
  Serious: Yes (Hospitalization)
  Sender: FDA-Public Use
  Company Number: FR-AVENTIS-200613798FR

PATIENT
  Age: 29 Year
  Sex: Male

DRUGS (2)
  1. KETEK [Suspect]
     Indication: INFECTION
     Route: 048
     Dates: start: 20061020, end: 20061026
  2. BACTRIM [Concomitant]
     Indication: INFECTION
     Route: 048
     Dates: start: 20061012, end: 20061019

REACTIONS (1)
  - NEUTROPENIA [None]
